FAERS Safety Report 17670308 (Version 2)
Quarter: 2020Q4

REPORT INFORMATION
  Report Type: Spontaneous
  Country: US (occurrence: US)
  Receive Date: 20200415
  Receipt Date: 20201013
  Transmission Date: 20210113
  Serious: No
  Sender: FDA-Public Use
  Company Number: US-AMNEAL PHARMACEUTICALS-2020-AMRX-00533

PATIENT
  Sex: Female

DRUGS (2)
  1. ISOTRETINOIN. [Suspect]
     Active Substance: ISOTRETINOIN
     Dosage: 40 MILLIGRAM, UNK
     Route: 048
     Dates: end: 202002
  2. ISOTRETINOIN. [Suspect]
     Active Substance: ISOTRETINOIN
     Indication: ACNE
     Dosage: 30 MILLIGRAM, UNK
     Route: 048
     Dates: start: 20191111

REACTIONS (3)
  - Mood altered [Recovering/Resolving]
  - Tearfulness [Recovering/Resolving]
  - Anger [Recovering/Resolving]
